FAERS Safety Report 4867022-8 (Version None)
Quarter: 2005Q4

REPORT INFORMATION
  Report Type: 
  Country: None (occurrence: None)
  Receive Date: 20051222
  Receipt Date: 20020310
  Transmission Date: 20060501
  Serious: Yes (Hospitalization)
  Sender: FDA-Public Use
  Company Number: 8-99156-003A

PATIENT
  Age: 55 Year
  Sex: Female

DRUGS (4)
  1. GEMTUZUMAB OZOGAMICIN (GEMTUZUMAB OZOGAMICIN, INJECTION) [Suspect]
     Indication: ACUTE MYELOID LEUKAEMIA
     Dosage: 9 MG/M(2) INTRAVENOUS
     Route: 042
     Dates: start: 19990517, end: 19990517
  2. DIFLUCAN (FLUCONAZOLE) (DIFLUCAN (FLUCONAZOLE)) [Concomitant]
  3. CIPROXIN (CIPROFLOXACIN) (CIPROXIN (CIPROFLOXACIN)) [Concomitant]
  4. ZELITREX (VALACICLOVIR) (ZELITREX (VALACICLOVIR)) [Concomitant]

REACTIONS (3)
  - LEUKOPENIA [None]
  - PYREXIA [None]
  - VENOOCCLUSIVE LIVER DISEASE [None]
